FAERS Safety Report 22632453 (Version 1)
Quarter: 2023Q2

REPORT INFORMATION
  Report Type: Report from Study
  Country: US (occurrence: US)
  Receive Date: 20230623
  Receipt Date: 20230623
  Transmission Date: 20230722
  Serious: No
  Sender: FDA-Public Use
  Company Number: US-002147023-NVSC2023US135398

PATIENT
  Sex: Female

DRUGS (1)
  1. TASIGNA [Suspect]
     Active Substance: NILOTINIB
     Indication: Product used for unknown indication
     Dosage: 150 MG, QID
     Route: 065

REACTIONS (19)
  - Illness [Unknown]
  - Full blood count decreased [Unknown]
  - Blood glucose increased [Unknown]
  - Headache [Unknown]
  - Red blood cell count decreased [Unknown]
  - Abdominal pain [Unknown]
  - Poor quality sleep [Unknown]
  - Vomiting [Unknown]
  - Nausea [Unknown]
  - Diarrhoea [Unknown]
  - Constipation [Unknown]
  - Pruritus [Unknown]
  - Arthralgia [Unknown]
  - Dyspnoea [Unknown]
  - Chest pain [Unknown]
  - Fatigue [Unknown]
  - Cough [Unknown]
  - Pyrexia [Unknown]
  - Myalgia [Unknown]
